FAERS Safety Report 23308560 (Version 1)
Quarter: 2023Q4

REPORT INFORMATION
  Report Type: Spontaneous
  Country: US (occurrence: None)
  Receive Date: 20231217
  Receipt Date: 20231217
  Transmission Date: 20240110
  Serious: Yes (Hospitalization)
  Sender: FDA-Public Use
  Company Number: None

PATIENT
  Age: 70 Year
  Sex: Female
  Weight: 67.5 kg

DRUGS (5)
  1. HERBALS [Suspect]
     Active Substance: HERBALS
     Indication: Arthralgia
     Dates: start: 20230410, end: 20230410
  2. DICLOFENAC [Suspect]
  3. DEXAMETHASONE [Suspect]
     Active Substance: DEXAMETHASONE
  4. Lamictal XR Tymlos [Concomitant]
  5. VITAMIN D [Concomitant]
     Active Substance: VITAMIN D NOS

REACTIONS (8)
  - Tremor [None]
  - Dysstasia [None]
  - Mental impairment [None]
  - Disorientation [None]
  - Balance disorder [None]
  - Transient ischaemic attack [None]
  - Recalled product administered [None]
  - Product formulation issue [None]

NARRATIVE: CASE EVENT DATE: 20230410
